FAERS Safety Report 4283838-3 (Version None)
Quarter: 2004Q1

REPORT INFORMATION
  Report Type: 
  Country: None (occurrence: None)
  Receive Date: 20040130
  Receipt Date: 20040121
  Transmission Date: 20041129
  Serious: Yes (Disabling, Other)
  Sender: FDA-Public Use
  Company Number: 200410701BWH

PATIENT
  Age: 38 Year
  Sex: Male
  Weight: 147.419 kg

DRUGS (8)
  1. LEVITRA [Suspect]
     Indication: ERECTILE DYSFUNCTION
     Dosage: 10 MG, TOTAL DAILY, ORAL
     Route: 048
     Dates: start: 20031001, end: 20040108
  2. GLUCOPHAGE [Concomitant]
  3. LISINOPRIL W/HYDROCHLOROTHIAZIDE [Concomitant]
  4. ASPIRIN [Concomitant]
  5. MULTI-VITAMIN [Concomitant]
  6. ACTOS [Concomitant]
  7. LASIX [Concomitant]
  8. COMBIVENT [Concomitant]

REACTIONS (3)
  - COLOUR BLINDNESS [None]
  - VISION BLURRED [None]
  - VISUAL DISTURBANCE [None]
